FAERS Safety Report 20696076 (Version 2)
Quarter: 2022Q2

REPORT INFORMATION
  Report Type: Spontaneous
  Country: US (occurrence: US)
  Receive Date: 20220411
  Receipt Date: 20220413
  Transmission Date: 20220721
  Serious: Yes (Death, Hospitalization, Other)
  Sender: FDA-Public Use
  Company Number: US-SA-SAC20220405001060

PATIENT
  Age: 40 Year
  Sex: Male

DRUGS (1)
  1. LARONIDASE [Suspect]
     Active Substance: LARONIDASE
     Indication: Mucopolysaccharidosis I
     Dosage: 29 MILLIGRAM, QW
     Route: 042
     Dates: start: 20030714, end: 20220404

REACTIONS (2)
  - Cardiac arrest [Fatal]
  - Coma [Not Recovered/Not Resolved]

NARRATIVE: CASE EVENT DATE: 20220401
